FAERS Safety Report 12401466 (Version 1)
Quarter: 2016Q2

REPORT INFORMATION
  Report Type: Spontaneous
  Country: CA (occurrence: CA)
  Receive Date: 20160525
  Receipt Date: 20160525
  Transmission Date: 20160815
  Serious: Yes (Other)
  Sender: FDA-Public Use
  Company Number: CA-SA-2016SA093765

PATIENT
  Age: 88 Year
  Sex: Female

DRUGS (2)
  1. ICY HOT [Suspect]
     Active Substance: MENTHOL\METHYL SALICYLATE
     Indication: MYALGIA
     Dosage: FREQUENCY:ONCE ON HER SHOULDER AND THE RIGHT SIDE OF HER BACK FROM THE ARMPIT TO THE WAIST
     Route: 065
     Dates: start: 20160506, end: 20160506
  2. WARFARIN [Suspect]
     Active Substance: WARFARIN
     Route: 065
     Dates: start: 2004

REACTIONS (7)
  - Injury [Not Recovered/Not Resolved]
  - Tenderness [Not Recovered/Not Resolved]
  - Drug interaction [Unknown]
  - Loss of consciousness [Not Recovered/Not Resolved]
  - Contusion [Unknown]
  - Medication error [Unknown]
  - Fall [Unknown]

NARRATIVE: CASE EVENT DATE: 20160506
